FAERS Safety Report 10269213 (Version 2)
Quarter: 2015Q3

REPORT INFORMATION
  Report Type: Spontaneous
  Country: DK (occurrence: DK)
  Receive Date: 20140630
  Receipt Date: 20150828
  Transmission Date: 20151125
  Serious: Yes (Other)
  Sender: FDA-Public Use
  Company Number: DK-009507513-1406DNK011151

PATIENT
  Age: 70 Year
  Sex: Male

DRUGS (4)
  1. SERETIDE [Concomitant]
     Active Substance: FLUTICASONE FUROATE\SALMETEROL XINAFOATE
     Indication: ASTHMA
     Dosage: SALMETEROL XINAFOATE 50 MCG + FLUTICASONE PROPIONATE 500 MCG/DOSAGE, 1 DF, BID
     Route: 055
     Dates: start: 20130808
  2. REMERON [Suspect]
     Active Substance: MIRTAZAPINE
     Indication: TENSION HEADACHE
     Dosage: STRENGTH: 15 MILLIGRAMS. THE PATIENT HAS TAKEN ONE TABLET
     Route: 048
     Dates: start: 201310, end: 201310
  3. BRICANYL [Concomitant]
     Active Substance: TERBUTALINE SULFATE
     Indication: ASTHMA
     Dosage: 0.5 MG/DOSAGE, 1 DF, QD
     Route: 055
     Dates: start: 20130116
  4. SPIRIVA RESPIMAT [Concomitant]
     Active Substance: TIOTROPIUM BROMIDE
     Indication: CHRONIC OBSTRUCTIVE PULMONARY DISEASE
     Dosage: 25 MICROGRAM/DOSAGE, 2 DF, QD
     Route: 055
     Dates: start: 20120116

REACTIONS (7)
  - Night sweats [Recovered/Resolved]
  - Indifference [Recovered/Resolved]
  - Angina pectoris [Recovered/Resolved]
  - Dizziness [Recovered/Resolved]
  - Somnolence [Recovered/Resolved]
  - Asthma [Recovered/Resolved]
  - Dyspnoea [Recovered/Resolved]

NARRATIVE: CASE EVENT DATE: 201310
